FAERS Safety Report 25655831 (Version 1)
Quarter: 2025Q3

REPORT INFORMATION
  Report Type: Spontaneous
  Country: US (occurrence: US)
  Receive Date: 20250807
  Receipt Date: 20250807
  Transmission Date: 20251020
  Serious: No
  Sender: ELI LILLY AND COMPANY
  Company Number: US-ELI_LILLY_AND_COMPANY-US202508004406

PATIENT
  Age: 63 Year
  Sex: Male

DRUGS (8)
  1. MOUNJARO [Suspect]
     Active Substance: TIRZEPATIDE
     Indication: Diabetes mellitus
     Route: 065
     Dates: start: 20250712
  2. MOUNJARO [Suspect]
     Active Substance: TIRZEPATIDE
     Indication: Diabetes mellitus
     Route: 065
     Dates: start: 20250712
  3. MOUNJARO [Suspect]
     Active Substance: TIRZEPATIDE
     Indication: Diabetes mellitus
     Route: 065
     Dates: start: 20250712
  4. MOUNJARO [Suspect]
     Active Substance: TIRZEPATIDE
     Indication: Diabetes mellitus
     Route: 065
     Dates: start: 20250712
  5. MOUNJARO [Suspect]
     Active Substance: TIRZEPATIDE
     Indication: Coronary artery disease
  6. MOUNJARO [Suspect]
     Active Substance: TIRZEPATIDE
     Indication: Coronary artery disease
  7. MOUNJARO [Suspect]
     Active Substance: TIRZEPATIDE
     Indication: Coronary artery disease
  8. MOUNJARO [Suspect]
     Active Substance: TIRZEPATIDE
     Indication: Coronary artery disease

REACTIONS (1)
  - Accidental underdose [Unknown]

NARRATIVE: CASE EVENT DATE: 20250802
